FAERS Safety Report 9666998 (Version 2)
Quarter: 2013Q4

REPORT INFORMATION
  Report Type: Spontaneous
  Country: US (occurrence: US)
  Receive Date: 20131104
  Receipt Date: 20131206
  Transmission Date: 20140711
  Serious: No
  Sender: FDA-Public Use
  Company Number: US-BIOGENIDEC-2013BI088776

PATIENT
  Age: 57 Year
  Sex: Female
  Weight: 74 kg

DRUGS (15)
  1. TECFIDERA [Suspect]
     Indication: MULTIPLE SCLEROSIS
     Route: 048
     Dates: start: 20130501
  2. TECFIDERA [Suspect]
     Indication: MULTIPLE SCLEROSIS
     Route: 048
     Dates: start: 20130501
  3. AMPYRA [Concomitant]
     Indication: GAIT DISTURBANCE
     Route: 048
     Dates: start: 20121112, end: 20130710
  4. GABAPENTIN [Concomitant]
  5. DIAZEPAM [Concomitant]
  6. TOPROL XL [Concomitant]
  7. COZAAR [Concomitant]
  8. NEURONTIN [Concomitant]
  9. VITAMIN B COMPLEX [Concomitant]
  10. JOINT SUPPORT [Concomitant]
  11. VESICARE [Concomitant]
  12. STOOL SOFTENER [Concomitant]
     Indication: CONSTIPATION
  13. IBUPROFEN [Concomitant]
  14. LIDODERM [Concomitant]
  15. METOPROLOL [Concomitant]

REACTIONS (9)
  - Hand fracture [Recovered/Resolved]
  - Hordeolum [Recovered/Resolved]
  - Fall [Recovered/Resolved]
  - Musculoskeletal chest pain [Recovered/Resolved]
  - Gait disturbance [Not Recovered/Not Resolved]
  - Rash papular [Recovered/Resolved]
  - Contusion [Unknown]
  - Constipation [Not Recovered/Not Resolved]
  - Bone contusion [Unknown]
